FAERS Safety Report 5234214-8 (Version None)
Quarter: 2007Q1

REPORT INFORMATION
  Report Type: 
  Country: None (occurrence: None)
  Receive Date: 20070209
  Receipt Date: 20070129
  Transmission Date: 20070707
  Serious: Yes (Other)
  Sender: FDA-Public Use
  Company Number: CA-JNJFOC-20070107398

PATIENT
  Sex: Male

DRUGS (12)
  1. REMICADE [Suspect]
     Dosage: 7 TH INFUSION
     Route: 042
  2. REMICADE [Suspect]
     Indication: PSORIATIC ARTHROPATHY
     Route: 042
  3. APO-LORAZEPAM [Concomitant]
     Route: 048
  4. INHIBACE [Concomitant]
     Route: 048
  5. HYZAAR [Concomitant]
  6. HYZAAR [Concomitant]
  7. SARNA P [Concomitant]
  8. LEUCOVORIN CALCIUM [Concomitant]
  9. METHOTREXATE [Concomitant]
     Route: 058
  10. CITALOPRAM HYDROBROMIDE [Concomitant]
     Dosage: 10 MG OD FOR 10 DAYS, THEN 20 MG HS
  11. CITALOPRAM HYDROBROMIDE [Concomitant]
  12. DAMYLIN WITH CODEINE [Concomitant]

REACTIONS (6)
  - COUGH [None]
  - DYSKINESIA [None]
  - ERYTHEMA [None]
  - FEELING HOT [None]
  - HEADACHE [None]
  - INFUSION RELATED REACTION [None]
